FAERS Safety Report 23035096 (Version 2)
Quarter: 2025Q1

REPORT INFORMATION
  Report Type: Report from Study
  Country: CA (occurrence: CA)
  Receive Date: 20231005
  Receipt Date: 20250108
  Transmission Date: 20250409
  Serious: Yes (Other)
  Sender: SANDOZ
  Company Number: CA-002147023-NVSC2022CA111421

PATIENT
  Sex: Male

DRUGS (4)
  1. HYRIMOZ [Suspect]
     Active Substance: ADALIMUMAB-ADAZ
     Dosage: 40 MG, BIW, WEEK 0 - 160MG, WEEK 2 - 80MG, THEN 40MG BIWEEKLY
     Route: 058
     Dates: start: 20250106
  2. HYRIMOZ [Suspect]
     Active Substance: ADALIMUMAB-ADAZ
     Indication: Crohn^s disease
     Dosage: 40 MG, BIW
     Route: 058
     Dates: start: 20220404
  3. BUDESONIDE [Concomitant]
     Active Substance: BUDESONIDE
     Indication: Product used for unknown indication
     Route: 065
  4. CHOLESTYRAMINE [Concomitant]
     Active Substance: CHOLESTYRAMINE
     Indication: Product used for unknown indication
     Route: 065

REACTIONS (9)
  - Burning sensation [Recovering/Resolving]
  - Anal fissure [Recovering/Resolving]
  - Skin fissures [Recovering/Resolving]
  - Tenderness [Recovering/Resolving]
  - Quality of life decreased [Recovering/Resolving]
  - Haemorrhage [Recovering/Resolving]
  - Injection site haemorrhage [Recovering/Resolving]
  - Incorrect dose administered [Unknown]
  - Wrong technique in device usage process [Unknown]
